FAERS Safety Report 14008196 (Version 1)
Quarter: 2017Q3

REPORT INFORMATION
  Report Type: Spontaneous
  Country: US (occurrence: None)
  Receive Date: 20170924
  Receipt Date: 20170924
  Transmission Date: 20171128
  Serious: Yes (Hospitalization)
  Sender: FDA-Public Use
  Company Number: None

PATIENT
  Age: 40 Year
  Sex: Female
  Weight: 133 kg

DRUGS (7)
  1. HYDROCORTISONE. [Suspect]
     Active Substance: HYDROCORTISONE
     Dates: end: 20170904
  2. ONCASPAR [Suspect]
     Active Substance: PEGASPARGASE
     Dates: end: 20170904
  3. DEXAMETHASONE. [Suspect]
     Active Substance: DEXAMETHASONE
     Dates: end: 20170907
  4. VINCRISTINE SULFATE. [Suspect]
     Active Substance: VINCRISTINE SULFATE
     Dates: end: 20170908
  5. CYTARABINE. [Suspect]
     Active Substance: CYTARABINE
     Dates: end: 20170818
  6. METHOTREXATE. [Suspect]
     Active Substance: METHOTREXATE
     Dates: end: 20170829
  7. DAUNORUBICIN [Suspect]
     Active Substance: DAUNORUBICIN
     Dates: end: 20170908

REACTIONS (10)
  - Chest pain [None]
  - Peripheral swelling [None]
  - Cough [None]
  - Dizziness [None]
  - Laboratory test abnormal [None]
  - Malaise [None]
  - Orthopnoea [None]
  - Dyspnoea exertional [None]
  - Dyspnoea [None]
  - Hypotension [None]

NARRATIVE: CASE EVENT DATE: 20170914
